FAERS Safety Report 13767233 (Version 1)
Quarter: 2017Q3

REPORT INFORMATION
  Report Type: Spontaneous
  Country: US (occurrence: US)
  Receive Date: 20170719
  Receipt Date: 20170719
  Transmission Date: 20171127
  Serious: No
  Sender: FDA-Public Use
  Company Number: US-BAUSCH-BL-2016-020354

PATIENT
  Sex: Female

DRUGS (2)
  1. XIFAXAN [Suspect]
     Active Substance: RIFAXIMIN
     Indication: BACTERIAL INFECTION
     Route: 048
  2. XIFAXAN [Suspect]
     Active Substance: RIFAXIMIN
     Dosage: ONE-HALF TABLET
     Route: 048

REACTIONS (8)
  - Condition aggravated [Unknown]
  - Off label use [Unknown]
  - Malaise [Unknown]
  - Palpitations [Unknown]
  - Incorrect dose administered [Not Recovered/Not Resolved]
  - Abnormal faeces [Unknown]
  - Abdominal pain [Unknown]
  - Swelling [Recovered/Resolved]

NARRATIVE: CASE EVENT DATE: 20160822
